FAERS Safety Report 6443624-2 (Version None)
Quarter: 2009Q4

REPORT INFORMATION
  Report Type: 
  Country: None (occurrence: None)
  Receive Date: 20091117
  Receipt Date: 20091104
  Transmission Date: 20100525
  Serious: Yes (Hospitalization, Disabling)
  Sender: FDA-Public Use
  Company Number: CA-PFIZER INC-2009284358

PATIENT
  Age: 69 Year
  Sex: Male
  Weight: 92.7 kg

DRUGS (15)
  1. BLINDED *NO SUBJECT DRUG [Suspect]
     Indication: PROSTATE CANCER
     Dosage: 37.5 MG, 1X/DAY
     Route: 048
     Dates: start: 20090918, end: 20090922
  2. BLINDED *PLACEBO [Suspect]
     Indication: PROSTATE CANCER
     Dosage: 37.5 MG, 1X/DAY
     Route: 048
     Dates: start: 20090918, end: 20090922
  3. BLINDED SUNITINIB MALATE [Suspect]
     Indication: PROSTATE CANCER
     Dosage: 37.5 MG, 1X/DAY
     Route: 048
     Dates: start: 20090918, end: 20090922
  4. PREDNISONE [Suspect]
     Indication: PROSTATE CANCER
     Dosage: 5 MG, 2X/DAY
     Route: 048
     Dates: start: 20090918, end: 20091006
  5. DIOVANE [Concomitant]
     Indication: HYPERTENSION
     Dosage: 80 MG, 1X/DAY
     Route: 048
     Dates: start: 20010101
  6. PARIET [Concomitant]
     Indication: DYSPEPSIA
     Dosage: 20 MG, 1X/DAY
     Route: 048
     Dates: start: 19970101, end: 20090930
  7. TERAZOSIN [Concomitant]
     Dosage: 2 MG, 1X/DAY
     Route: 048
     Dates: start: 19990101
  8. TYLENOL (CAPLET) [Concomitant]
     Indication: CANCER PAIN
     Dosage: 1000 MG, 4X/DAY
     Route: 048
     Dates: start: 20090801
  9. TYLENOL W/ CODEINE NO. 3 [Concomitant]
     Indication: HEADACHE
     Dosage: 1-2 TABS AS NEEDED
     Route: 048
     Dates: start: 20090929, end: 20090930
  10. ASPIRIN [Concomitant]
     Indication: CEREBROVASCULAR ACCIDENT PROPHYLAXIS
     Dosage: 81 MG, 1X/DAY
     Route: 048
     Dates: start: 20091006
  11. DEXAMETHASONE [Concomitant]
     Indication: CEREBROVASCULAR ACCIDENT
     Dosage: 8 MG, 2X/DAY
     Route: 048
     Dates: start: 20090906
  12. HEPARIN [Concomitant]
     Indication: THROMBOSIS PROPHYLAXIS
     Dosage: 5000 IU, 2X/DAY
     Route: 058
     Dates: start: 20091004
  13. LABETALOL [Concomitant]
     Indication: HYPERTENSION
     Dosage: 100 MG, 2X/DAY
     Route: 048
     Dates: start: 20091002
  14. HYDROMORPHONE [Concomitant]
     Indication: CANCER PAIN
     Dosage: 3 MG, 2X/DAY
     Route: 048
     Dates: start: 20091004
  15. HYDROMORPHONE [Concomitant]
     Dosage: 1 MG, AS NEEDED
     Route: 048
     Dates: start: 20091004

REACTIONS (1)
  - CEREBROVASCULAR ACCIDENT [None]
